FAERS Safety Report 10220185 (Version 1)
Quarter: 2014Q2

REPORT INFORMATION
  Report Type: Spontaneous
  Country: US (occurrence: US)
  Receive Date: 20140605
  Receipt Date: 20140605
  Transmission Date: 20141212
  Serious: Yes (Death)
  Sender: FDA-Public Use
  Company Number: US-LUNDBECK-DKLU1100574

PATIENT
  Age: 18 Year
  Sex: Female
  Weight: 37 kg

DRUGS (1)
  1. SABRIL     (TABLET) [Suspect]
     Indication: LUNG DISORDER
     Route: 048
     Dates: start: 20130910, end: 20140523

REACTIONS (1)
  - Death [Fatal]
